FAERS Safety Report 8244102-0 (Version None)
Quarter: 2012Q1

REPORT INFORMATION
  Report Type: 
  Country: None (occurrence: None)
  Receive Date: 20120329
  Receipt Date: 20120326
  Transmission Date: 20120608
  Serious: Yes (Hospitalization, Disabling)
  Sender: FDA-Public Use
  Company Number: CA-AMGEN-CANCT2012002028

PATIENT
  Age: 30 Year
  Sex: Female
  Weight: 84.3 kg

DRUGS (23)
  1. CYCLOPHOSPHAMIDE [Concomitant]
     Dosage: 500 MG/M2, Q3WK
     Route: 042
     Dates: start: 20111223
  2. PEPCID [Concomitant]
     Dosage: 20 ML, UNK
     Route: 042
     Dates: start: 20110930, end: 20111216
  3. CLONAZEPAM [Concomitant]
     Indication: INSOMNIA
     Dosage: 0.5 MG, PRN
     Route: 048
     Dates: start: 20110615
  4. VITAMIN B COMPLEX CAP [Concomitant]
     Indication: PROPHYLAXIS
     Dosage: UNK UNK, QD
     Route: 048
     Dates: start: 20080101
  5. LYRICA [Concomitant]
     Indication: NEUROPATHY PERIPHERAL
     Dosage: 50 MG, PRN
     Dates: start: 20090101
  6. ATIVAN [Concomitant]
     Dosage: 1 MG, UNK
     Route: 048
     Dates: start: 20111020
  7. KYTRIL [Concomitant]
     Dosage: 1 MG, UNK
     Route: 042
     Dates: start: 20111223
  8. XGEVA [Suspect]
     Indication: BREAST CANCER
     Dosage: 120 MG, Q3WK
     Route: 058
     Dates: start: 20111006, end: 20120201
  9. NEULASTA [Concomitant]
     Dosage: 6 MG, UNK
     Route: 058
     Dates: start: 20111224
  10. ZOFRAN [Concomitant]
     Dosage: 8 MG, UNK
     Route: 048
     Dates: start: 20111224
  11. FLUOROURACIL [Concomitant]
     Dosage: 500 MG/M2, Q3WK
     Route: 042
     Dates: start: 20111223
  12. EPIRUBICIN [Concomitant]
     Dosage: 100 MG/M2, Q3WK
     Route: 042
     Dates: start: 20111223
  13. CLARITIN [Concomitant]
     Dosage: 10 MG, UNK
     Route: 048
     Dates: start: 20111014, end: 20111216
  14. NAPROSYN [Concomitant]
     Indication: MIGRAINE
     Dosage: 500 MG, PRN
     Route: 048
     Dates: start: 20100809
  15. CALCIUM CARBONATE [Concomitant]
     Dosage: 600 MG, BID
     Route: 048
     Dates: start: 20111006, end: 20120221
  16. VITAMIN D [Concomitant]
     Dosage: UNK
     Route: 048
     Dates: start: 20111006, end: 20120221
  17. LUPRON DEPOT [Concomitant]
     Dosage: 3.75 MG, QMO
     Route: 030
     Dates: start: 20110922, end: 20111116
  18. EMTEC [Concomitant]
     Dosage: 30 MG, UNK
     Route: 048
     Dates: start: 20111020, end: 20111225
  19. DECADRON [Concomitant]
     Dosage: UNK
     Route: 042
     Dates: start: 20110930
  20. PROCHLORPERAZINE [Concomitant]
     Dosage: 10 MG, UNK
     Route: 048
     Dates: start: 20111224
  21. PACLITAXEL [Concomitant]
     Dosage: 80 MG/M2, QWK
     Route: 042
     Dates: start: 20110930, end: 20111216
  22. SYNTHROID [Concomitant]
     Indication: HYPOTHYROIDISM
     Dosage: 0.025 MG, UNK
     Route: 048
     Dates: start: 20110615
  23. IBUPROFEN (ADVIL) [Concomitant]
     Indication: MIGRAINE
     Dosage: 400 MG, PRN
     Route: 048
     Dates: start: 19990615

REACTIONS (1)
  - INTERVERTEBRAL DISC PROTRUSION [None]
